FAERS Safety Report 9358456 (Version 1)
Quarter: 2013Q2

REPORT INFORMATION
  Report Type: Spontaneous
  Country: US (occurrence: US)
  Receive Date: 20130620
  Receipt Date: 20130620
  Transmission Date: 20140414
  Serious: No
  Sender: FDA-Public Use
  Company Number: US-US-EMD SERONO, INC.-7159763

PATIENT
  Sex: Female

DRUGS (3)
  1. REBIF [Suspect]
     Indication: MULTIPLE SCLEROSIS
     Route: 058
     Dates: start: 20101022
  2. UNSPECIFIED MEDICATIONS [Concomitant]
     Indication: PRODUCT USED FOR UNKNOWN INDICATION
  3. ATIVAN [Concomitant]
     Indication: INSOMNIA

REACTIONS (7)
  - Central nervous system lesion [Unknown]
  - VIIth nerve paralysis [Unknown]
  - Cognitive disorder [Not Recovered/Not Resolved]
  - Fall [Not Recovered/Not Resolved]
  - Bladder disorder [Recovering/Resolving]
  - Tremor [Not Recovered/Not Resolved]
  - Multiple sclerosis [Not Recovered/Not Resolved]
